FAERS Safety Report 5399275-4 (Version None)
Quarter: 2007Q3

REPORT INFORMATION
  Report Type: 
  Country: None (occurrence: None)
  Receive Date: 20070727
  Receipt Date: 20070720
  Transmission Date: 20080115
  Serious: Yes (Disabling, Congenital Anomaly)
  Sender: FDA-Public Use
  Company Number: B0479504A

PATIENT

DRUGS (3)
  1. PAXIL [Suspect]
     Indication: DRUG USE FOR UNKNOWN INDICATION
     Dosage: 10MG PER DAY
     Dates: start: 20050601, end: 20050701
  2. LUVOX [Concomitant]
  3. LULLAN [Concomitant]

REACTIONS (2)
  - DRUG EXPOSURE DURING PREGNANCY [None]
  - HYPOACUSIS [None]
